FAERS Safety Report 25102257 (Version 1)
Quarter: 2025Q1

REPORT INFORMATION
  Report Type: Spontaneous
  Country: JP (occurrence: JP)
  Receive Date: 20250320
  Receipt Date: 20250320
  Transmission Date: 20250409
  Serious: Yes (Life-Threatening)
  Sender: MALLINCKRODT
  Company Number: JP-MALLINCKRODT-MNK202501425

PATIENT
  Age: 13 Day
  Sex: Male
  Weight: 3 kg

DRUGS (6)
  1. NITRIC OXIDE [Suspect]
     Active Substance: NITRIC OXIDE
     Indication: Pulmonary hypertension
     Route: 055
  2. SILDENAFIL [Concomitant]
     Active Substance: SILDENAFIL
  3. ISOSORBIDE DINITRATE [Concomitant]
     Active Substance: ISOSORBIDE DINITRATE
  4. EPINEPHRINE [Concomitant]
     Active Substance: EPINEPHRINE
  5. DOPAMINE [Concomitant]
     Active Substance: DOPAMINE HYDROCHLORIDE
  6. OLANZAPINE [Concomitant]
     Active Substance: OLANZAPINE

REACTIONS (3)
  - Hypoxia [Recovering/Resolving]
  - Condition aggravated [Recovering/Resolving]
  - Hypotension [Recovering/Resolving]
